FAERS Safety Report 6771220-6 (Version None)
Quarter: 2010Q2

REPORT INFORMATION
  Report Type: 
  Country: None (occurrence: None)
  Receive Date: 20100614
  Receipt Date: 20100601
  Transmission Date: 20101027
  Serious: Yes (Hospitalization)
  Sender: FDA-Public Use
  Company Number: 2010060005

PATIENT
  Age: 48 Year
  Sex: Female

DRUGS (4)
  1. SOMA [Suspect]
     Indication: MUSCLE SPASMS
     Dosage: 350 MG, Q6 HOURS PRN), ORAL
     Route: 048
     Dates: start: 20071116, end: 20100406
  2. OXYCONTIN [Suspect]
     Indication: PAIN
     Dosage: 30 MG (15 MG,  2 IN 1 D),ORAL
     Route: 048
     Dates: start: 20071116, end: 20100406
  3. CYMBALTA (DULOXETINE HC1) [Concomitant]
  4. LYRICA [Concomitant]

REACTIONS (2)
  - ACCIDENTAL OVERDOSE [None]
  - UNRESPONSIVE TO STIMULI [None]
